FAERS Safety Report 11700730 (Version 1)
Quarter: 2015Q4

REPORT INFORMATION
  Report Type: Spontaneous
  Country: US (occurrence: US)
  Receive Date: 20151105
  Receipt Date: 20151105
  Transmission Date: 20160304
  Serious: No
  Sender: FDA-Public Use
  Company Number: US-009507513-1511USA002051

PATIENT
  Sex: Female

DRUGS (1)
  1. KEYTRUDA [Suspect]
     Active Substance: PEMBROLIZUMAB
     Indication: NON-SMALL CELL LUNG CANCER
     Dosage: 100MG/ 2 MG/KG AS AN INTRAVENOUS INFUSION OVER 30 MINUTES
     Route: 042

REACTIONS (2)
  - Rash vesicular [Unknown]
  - Product use issue [Unknown]
